FAERS Safety Report 12432081 (Version 1)
Quarter: 2016Q2

REPORT INFORMATION
  Report Type: Spontaneous
  Country: US (occurrence: None)
  Receive Date: 20160602
  Receipt Date: 20160602
  Transmission Date: 20160815
  Serious: No
  Sender: FDA-Public Use
  Company Number: None

PATIENT
  Age: 61 Year
  Sex: Male
  Weight: 98 kg

DRUGS (2)
  1. LISINOPRIL. [Suspect]
     Active Substance: LISINOPRIL
     Route: 048
     Dates: start: 20140423, end: 20160315
  2. ACETAMINOPHEN/HYDROCODONE [Suspect]
     Active Substance: ACETAMINOPHEN\HYDROCODONE
     Dosage: 1-2 TAB PRN PO
     Route: 048
     Dates: start: 20160310, end: 20160315

REACTIONS (4)
  - Post procedural complication [None]
  - Angioedema [None]
  - Asthma [None]
  - Drug hypersensitivity [None]

NARRATIVE: CASE EVENT DATE: 20160315
